FAERS Safety Report 23223024 (Version 1)
Quarter: 2023Q4

REPORT INFORMATION
  Report Type: Spontaneous
  Country: CN (occurrence: CN)
  Receive Date: 20231123
  Receipt Date: 20231123
  Transmission Date: 20240109
  Serious: Yes (Other)
  Sender: FDA-Public Use
  Company Number: CN-009507513-2311CHN006418

PATIENT
  Age: 77 Year
  Sex: Male
  Weight: 61 kg

DRUGS (3)
  1. CILASTATIN SODIUM\IMIPENEM [Suspect]
     Active Substance: CILASTATIN SODIUM\IMIPENEM
     Indication: Pneumonitis
     Dosage: 0.5 G, BID/Q12H
     Route: 041
     Dates: start: 20231017, end: 20231031
  2. SODIUM CHLORIDE [Suspect]
     Active Substance: SODIUM CHLORIDE
     Indication: Pneumonitis
     Dosage: 50 ML, BID/Q12H
     Route: 041
     Dates: start: 20231017, end: 20231031
  3. SODIUM CHLORIDE [Suspect]
     Active Substance: SODIUM CHLORIDE
     Dosage: 100 ML, QD
     Route: 041
     Dates: start: 20231031

REACTIONS (3)
  - Coma [Recovering/Resolving]
  - Nervous system injury [Unknown]
  - Product preparation issue [Unknown]

NARRATIVE: CASE EVENT DATE: 20231001
